FAERS Safety Report 5468689-6 (Version None)
Quarter: 2007Q3

REPORT INFORMATION
  Report Type: 
  Country: None (occurrence: None)
  Receive Date: 20070926
  Receipt Date: 20070915
  Transmission Date: 20080115
  Serious: Yes (Other)
  Sender: FDA-Public Use
  Company Number: US-PFIZER INC-2007018241

PATIENT
  Sex: Female

DRUGS (1)
  1. LIPITOR [Suspect]
     Indication: HYPERLIPIDAEMIA
     Route: 048

REACTIONS (7)
  - BALANCE DISORDER [None]
  - COORDINATION ABNORMAL [None]
  - DIPLOPIA [None]
  - GAIT DISTURBANCE [None]
  - JOINT DISLOCATION [None]
  - MALAISE [None]
  - MUSCULAR WEAKNESS [None]
